FAERS Safety Report 11313392 (Version 3)
Quarter: 2015Q4

REPORT INFORMATION
  Report Type: Spontaneous
  Country: US (occurrence: US)
  Receive Date: 20150727
  Receipt Date: 20151218
  Transmission Date: 20160304
  Serious: No
  Sender: FDA-Public Use
  Company Number: US-PFIZER INC-2015236888

PATIENT
  Age: 69 Year
  Sex: Male
  Weight: 93 kg

DRUGS (2)
  1. CORGARD [Suspect]
     Active Substance: NADOLOL
     Indication: HYPERTENSION
     Dosage: 40 MG, DAILY
     Route: 048
  2. CORGARD [Suspect]
     Active Substance: NADOLOL
     Indication: EXTRASYSTOLES
     Dosage: 20 MG, UNK
     Route: 048
     Dates: start: 2005

REACTIONS (3)
  - Drug ineffective [Unknown]
  - Therapeutic response unexpected [Recovered/Resolved]
  - Pre-existing condition improved [Recovered/Resolved]
